FAERS Safety Report 25593747 (Version 1)
Quarter: 2025Q3

REPORT INFORMATION
  Report Type: Spontaneous
  Country: US (occurrence: US)
  Receive Date: 20250723
  Receipt Date: 20250723
  Transmission Date: 20251020
  Serious: No
  Sender: BRISTOL-MYERS SQUIBB COMPANY
  Company Number: US-BRISTOL-MYERS SQUIBB COMPANY-2025-100732

PATIENT
  Age: 80 Year
  Sex: Female

DRUGS (7)
  1. ELIQUIS [Suspect]
     Active Substance: APIXABAN
     Indication: Product used for unknown indication
  2. BRUKINSA [Suspect]
     Active Substance: ZANUBRUTINIB
     Indication: Chronic lymphocytic leukaemia
     Route: 048
     Dates: start: 20240518
  3. BRUKINSA [Suspect]
     Active Substance: ZANUBRUTINIB
     Route: 048
     Dates: start: 20240518
  4. BRUKINSA [Suspect]
     Active Substance: ZANUBRUTINIB
     Route: 048
     Dates: start: 20240518
  5. BRUKINSA [Suspect]
     Active Substance: ZANUBRUTINIB
     Route: 048
     Dates: start: 20240518
  6. BRUKINSA [Suspect]
     Active Substance: ZANUBRUTINIB
     Route: 048
     Dates: start: 20240518
  7. XARELTO [Suspect]
     Active Substance: RIVAROXABAN
     Indication: Deep vein thrombosis

REACTIONS (7)
  - Muscle fatigue [Unknown]
  - Rash macular [Unknown]
  - Peripheral swelling [Recovered/Resolved]
  - Contusion [Recovered/Resolved]
  - Erythema [Recovered/Resolved]
  - Sleep disorder [Unknown]
  - Product dose omission issue [Unknown]
